FAERS Safety Report 8294382-0 (Version None)
Quarter: 2012Q2

REPORT INFORMATION
  Report Type: 
  Country: None (occurrence: None)
  Receive Date: 20120418
  Receipt Date: 20120412
  Transmission Date: 20120825
  Serious: Yes (Death)
  Sender: FDA-Public Use
  Company Number: DE-BAYER-2011-070907

PATIENT
  Age: 80 Year
  Sex: Male
  Weight: 89 kg

DRUGS (9)
  1. CITALOPRAM [Concomitant]
     Dosage: 1-0-0
  2. GALANTAMINE HYDROBROMIDE [Concomitant]
     Dosage: 1-0-0
  3. SPIRONOLACTONE [Concomitant]
     Dosage: 1-1-1-1
  4. LISINOPRIL [Concomitant]
     Dosage: 1-0-0
  5. GLYBURIDE [Concomitant]
     Dosage: 1/2-0-0
  6. SORAFENIB [Suspect]
     Dosage: UNK
     Dates: end: 20100922
  7. SORAFENIB [Suspect]
     Indication: HEPATIC NEOPLASM MALIGNANT
     Dosage: 400 MG, BID
     Route: 048
     Dates: start: 20100304, end: 20100331
  8. NIFEDIPINE [Concomitant]
     Dosage: 1/2-0-0
  9. TAMSULOSIN HCL [Concomitant]
     Dosage: 1-0-0

REACTIONS (2)
  - GENERAL PHYSICAL HEALTH DETERIORATION [None]
  - ASCITES [None]
